FAERS Safety Report 17038900 (Version 1)
Quarter: 2019Q4

REPORT INFORMATION
  Report Type: Spontaneous
  Country: SK (occurrence: SK)
  Receive Date: 20191115
  Receipt Date: 20191115
  Transmission Date: 20200122
  Serious: Yes (Hospitalization)
  Sender: FDA-Public Use
  Company Number: SK-MYLANLABS-2019M1109755

PATIENT
  Age: 46 Year
  Sex: Female
  Weight: 70 kg

DRUGS (2)
  1. KLACID [Suspect]
     Active Substance: CLARITHROMYCIN
     Indication: UPPER RESPIRATORY TRACT INFECTION
     Dosage: 500 MILLIGRAM, BID,1-0-1
     Route: 048
     Dates: start: 20190520, end: 20190523
  2. PARACETAMOL [Suspect]
     Active Substance: ACETAMINOPHEN
     Indication: UPPER RESPIRATORY TRACT INFECTION
     Dosage: 1 DOSAGE FORM, Q8H,1-1-1
     Route: 048
     Dates: start: 20190520, end: 20190523

REACTIONS (2)
  - Pharyngeal oedema [Recovered/Resolved]
  - Rash macular [Recovered/Resolved]

NARRATIVE: CASE EVENT DATE: 20190523
